FAERS Safety Report 20343888 (Version 1)
Quarter: 2022Q1

REPORT INFORMATION
  Report Type: Spontaneous
  Country: FR (occurrence: FR)
  Receive Date: 20220118
  Receipt Date: 20220118
  Transmission Date: 20220424
  Serious: Yes (Other)
  Sender: FDA-Public Use
  Company Number: FR-DENTSPLY-2021SCDP000362

PATIENT
  Age: 5 Day
  Sex: Female
  Weight: .825 kg

DRUGS (1)
  1. LIDOCAINE\PRILOCAINE [Suspect]
     Active Substance: LIDOCAINE\PRILOCAINE
     Indication: Local anaesthesia
     Dosage: 1 DOSAGE FORM OF 5 % EMLA PATCH ADHESIVE SKIN DRESSING (APPLICATION OF A PATCH FOR 20MIN BEFORE A LU
     Route: 003
     Dates: start: 20210826, end: 20210826

REACTIONS (1)
  - Skin burning sensation [None]

NARRATIVE: CASE EVENT DATE: 20210826
